FAERS Safety Report 6333632-4 (Version None)
Quarter: 2009Q3

REPORT INFORMATION
  Report Type: 
  Country: None (occurrence: None)
  Receive Date: 20090829
  Receipt Date: 20090522
  Transmission Date: 20100115
  Serious: No
  Sender: FDA-Public Use
  Company Number: US-ABBOTT-09P-163-0575432-00

PATIENT
  Sex: Male
  Weight: 104.42 kg

DRUGS (7)
  1. SIMCOR [Suspect]
     Indication: BLOOD CHOLESTEROL INCREASED
     Dosage: 500/20MG AT BEDTIME
     Route: 048
     Dates: start: 20090501
  2. METFORMIN HCL [Concomitant]
     Indication: DRUG USE FOR UNKNOWN INDICATION
  3. ATACAND HCT [Concomitant]
     Indication: DRUG USE FOR UNKNOWN INDICATION
  4. DILTIAZEM HYDROCHLORIDE [Concomitant]
     Indication: DRUG USE FOR UNKNOWN INDICATION
  5. NEXIUM [Concomitant]
     Indication: DRUG USE FOR UNKNOWN INDICATION
  6. TYLENOL [Concomitant]
     Indication: PROPHYLAXIS
  7. TYLENOL [Concomitant]
     Indication: FLUSHING

REACTIONS (3)
  - DIZZINESS [None]
  - FEELING HOT [None]
  - FLUSHING [None]
